FAERS Safety Report 25333648 (Version 1)
Quarter: 2025Q2

REPORT INFORMATION
  Report Type: Spontaneous
  Country: FR (occurrence: FR)
  Receive Date: 20250520
  Receipt Date: 20250520
  Transmission Date: 20250717
  Serious: Yes (Hospitalization)
  Sender: CSL BEHRING
  Company Number: None

PATIENT
  Age: 26 Year
  Sex: Female

DRUGS (8)
  1. RHOPHYLAC [Suspect]
     Active Substance: HUMAN RHO(D) IMMUNE GLOBULIN
     Indication: Acute myeloid leukaemia
     Route: 042
     Dates: start: 20250207, end: 20250209
  2. RHOPHYLAC [Suspect]
     Active Substance: HUMAN RHO(D) IMMUNE GLOBULIN
     Indication: Acute myeloid leukaemia
     Route: 042
     Dates: start: 20250207, end: 20250209
  3. VESANOID [Suspect]
     Active Substance: TRETINOIN
     Indication: Acute myeloid leukaemia
     Route: 048
     Dates: start: 20250208
  4. TRISENOX [Suspect]
     Active Substance: ARSENIC TRIOXIDE
     Indication: Acute myeloid leukaemia
     Route: 042
     Dates: start: 20250211
  5. NOMEGESTROL [Suspect]
     Active Substance: NOMEGESTROL
     Indication: Product used for unknown indication
     Dosage: 5 MG, QD (ONCE PER DAY)
     Route: 048
     Dates: start: 20250208
  6. PIPERACILLIN SODIUM\TAZOBACTAM SODIUM [Suspect]
     Active Substance: PIPERACILLIN SODIUM\TAZOBACTAM SODIUM
     Indication: Enteritis
     Dosage: 16 G, BID
     Route: 042
     Dates: start: 20250208, end: 20250217
  7. POLARAMINE [Concomitant]
     Active Substance: DEXCHLORPHENIRAMINE MALEATE
     Indication: Antiallergic therapy
     Route: 042
     Dates: start: 20250208
  8. IVERMECTIN [Concomitant]
     Active Substance: IVERMECTIN
     Indication: Parasitic infection prophylaxis
     Route: 048
     Dates: start: 20250207, end: 20250207

REACTIONS (2)
  - Hepatic cytolysis [Not Recovered/Not Resolved]
  - Rash maculo-papular [Recovering/Resolving]

NARRATIVE: CASE EVENT DATE: 20250213
